FAERS Safety Report 20698804 (Version 1)
Quarter: 2022Q2

REPORT INFORMATION
  Report Type: Spontaneous
  Country: US (occurrence: US)
  Receive Date: 20220412
  Receipt Date: 20220412
  Transmission Date: 20220720
  Serious: No
  Sender: FDA-Public Use
  Company Number: US-BAUSCH-BL-2022-008610

PATIENT
  Age: 70 Year
  Sex: Female
  Weight: 56.750 kg

DRUGS (2)
  1. VYZULTA [Suspect]
     Active Substance: LATANOPROSTENE BUNOD
     Indication: Glaucoma
     Route: 047
  2. ACYCLOVIR [Concomitant]
     Active Substance: ACYCLOVIR
     Indication: Product used for unknown indication

REACTIONS (4)
  - Cough [Recovering/Resolving]
  - Productive cough [Recovering/Resolving]
  - Oropharyngeal discomfort [Recovering/Resolving]
  - Accidental exposure to product [Unknown]
